FAERS Safety Report 8140533-8 (Version None)
Quarter: 2012Q1

REPORT INFORMATION
  Report Type: 
  Country: None (occurrence: None)
  Receive Date: 20120216
  Receipt Date: 20120213
  Transmission Date: 20120608
  Serious: Yes (Other)
  Sender: FDA-Public Use
  Company Number: VE-PFIZER INC-2011104530

PATIENT
  Age: 40 Year
  Sex: Female

DRUGS (1)
  1. VARENICLINE TARTRATE [Suspect]
     Indication: SMOKING CESSATION THERAPY
     Dosage: 0.5 MG, 1X/DAY
     Route: 048
     Dates: start: 20110513, end: 20110516

REACTIONS (4)
  - INSOMNIA [None]
  - ABORTION SPONTANEOUS [None]
  - NAUSEA [None]
  - HEADACHE [None]
